FAERS Safety Report 9410593 (Version 1)
Quarter: 2013Q3

REPORT INFORMATION
  Report Type: Spontaneous
  Country: FR (occurrence: FR)
  Receive Date: 20130719
  Receipt Date: 20130719
  Transmission Date: 20140515
  Serious: Yes (Death)
  Sender: FDA-Public Use
  Company Number: FR-BRISTOL-MYERS SQUIBB COMPANY-19113927

PATIENT
  Age: 94 Year
  Sex: Female

DRUGS (15)
  1. APROVEL FILM-COATED TABS 150 MG [Suspect]
     Route: 048
     Dates: end: 20130616
  2. ALPRAZOLAM [Suspect]
     Dosage: SCORED TABLET
     Route: 048
     Dates: start: 20130220, end: 20130616
  3. DOLIPRANE [Suspect]
     Dosage: 500 MG TABS
     Route: 048
     Dates: end: 20130616
  4. IMOVANE [Suspect]
     Dosage: FILM-COATED SCORED TABLET
     Dates: start: 20130610, end: 20130616
  5. MIANSERIN [Suspect]
     Dosage: FILM-COATED SCORED TABLET
     Route: 048
     Dates: start: 20130328, end: 20130616
  6. LASILIX FAIBLE [Suspect]
     Route: 048
     Dates: end: 20130616
  7. GELOX [Suspect]
     Route: 048
     Dates: end: 20130616
  8. LANSOYL [Suspect]
     Dates: end: 20130616
  9. TRANSIPEG [Suspect]
     Route: 048
     Dates: end: 20130616
  10. BETNEVAL [Concomitant]
     Dosage: OINTMENT
  11. ACTIVATED CHARCOAL [Concomitant]
  12. CELLUVISC [Concomitant]
  13. DEXERYL [Concomitant]
  14. PROCTOLOG [Concomitant]
  15. XALATAN [Concomitant]

REACTIONS (1)
  - Fall [Fatal]
